FAERS Safety Report 6273972-0 (Version None)
Quarter: 2009Q3

REPORT INFORMATION
  Report Type: 
  Country: None (occurrence: None)
  Receive Date: 20090720
  Receipt Date: 20090714
  Transmission Date: 20100115
  Serious: Yes (Disabling)
  Sender: FDA-Public Use
  Company Number: IE-ROCHE-635908

PATIENT
  Sex: Male

DRUGS (8)
  1. FUZEON [Suspect]
     Route: 058
     Dates: start: 20080221, end: 20081009
  2. DARUNAVIR [Suspect]
     Route: 048
     Dates: start: 20080221
  3. RITONAVIR [Suspect]
     Route: 048
     Dates: start: 20080221
  4. RALTEGRAVIR [Concomitant]
     Route: 048
     Dates: start: 20080221
  5. TENOFOVIR [Concomitant]
     Route: 048
     Dates: start: 20080221
  6. EFAVIRENZ [Concomitant]
     Dosage: REPORTED DRUG : EFAVIREZ.
     Route: 048
     Dates: start: 20080202
  7. MIXTARD HUMAN 70/30 [Concomitant]
     Route: 058
  8. RAMIPRIL [Concomitant]
     Indication: DRUG USE FOR UNKNOWN INDICATION
     Dosage: REPORTED AS RAMAPRIL
     Route: 048

REACTIONS (2)
  - MUSCULAR WEAKNESS [None]
  - PARAESTHESIA [None]
